FAERS Safety Report 14535205 (Version 1)
Quarter: 2018Q1

REPORT INFORMATION
  Report Type: Spontaneous
  Country: NL (occurrence: NL)
  Receive Date: 20180215
  Receipt Date: 20180215
  Transmission Date: 20180509
  Serious: Yes (Hospitalization)
  Sender: FDA-Public Use
  Company Number: NL-TEVA-2018-NL-855872

PATIENT
  Age: 82 Year
  Sex: Male

DRUGS (12)
  1. AMLODIPINE TABL 5 MG [Concomitant]
     Dosage: ONCE DAILY 1
  2. HYDROCOBAMINE INJECTION FLUID  1MG=2ML [Concomitant]
     Dosage: FOR INJECTION
  3. TAMSULOSIN CAPSULE WITH REGULATED RELEASE, 0,4 MG [Suspect]
     Active Substance: TAMSULOSIN
     Indication: MICTURITION DISORDER
     Dosage: 1 TIME DAY 1 CAPSULE
     Dates: start: 20171208, end: 20171208
  4. OMEPRAZOL CAPS 40MG [Concomitant]
     Dosage: ONCE DAILY 1
  5. NEBIVOLOL 2.5MG [Concomitant]
     Dosage: ONCE DAILY 1
  6. MONOCEDOCARD RET CAPS 50MG [Concomitant]
     Dosage: ONCE DAILY 1
  7. PERSANTIN RET CAPS 200MG [Concomitant]
     Dosage: TWICE DAILY 1
  8. ISOSORBID DIN TABL 5 MG [Concomitant]
     Dosage: AS REQUIRED 1 TABLET
  9. IRBESARTAN TABL 300MG [Concomitant]
     Dosage: ONCE DAILY 1
  10. ACETYLSALICYLIC ACID CARDIO DISPERSIBLE TABLET 80MG [Concomitant]
     Dosage: ONCE DAILY 1
  11. METFORMINE HCL TABL 500MG [Concomitant]
     Dosage: TWICE DAILY 1
  12. PRAVASTATIN TABLET (T) 40 MG RATIOPHARM (RP) [Concomitant]
     Dosage: BEFORE NIGHT 1 TABLET

REACTIONS (4)
  - Syncope [Recovered/Resolved]
  - Glomerular filtration rate decreased [None]
  - Loss of consciousness [Recovered/Resolved]
  - Hypotension [Recovered/Resolved]

NARRATIVE: CASE EVENT DATE: 20171208
